FAERS Safety Report 7180566-1 (Version None)
Quarter: 2010Q4

REPORT INFORMATION
  Report Type: 
  Country: None (occurrence: None)
  Receive Date: 20101221
  Receipt Date: 20101220
  Transmission Date: 20110411
  Serious: Yes (Death)
  Sender: FDA-Public Use
  Company Number: US-PFIZER INC-2010175767

PATIENT
  Sex: Female

DRUGS (1)
  1. CAMPTOSAR [Suspect]
     Indication: GALLBLADDER CANCER
     Dosage: 180 MG/M2, EVERY 3 WEEKS
     Route: 042
     Dates: start: 20090910

REACTIONS (1)
  - DEATH [None]
